FAERS Safety Report 4805498-2 (Version None)
Quarter: 2005Q4

REPORT INFORMATION
  Report Type: 
  Country: None (occurrence: None)
  Receive Date: 20051018
  Receipt Date: 20051002
  Transmission Date: 20060501
  Serious: Yes (Hospitalization)
  Sender: FDA-Public Use
  Company Number: 2005-01687

PATIENT
  Age: 75 Year
  Sex: Male
  Weight: 69.5 kg

DRUGS (21)
  1. VELCADE [Suspect]
     Indication: MULTIPLE MYELOMA
     Dosage: 2.30 MG, INTRAVENIOUS
     Route: 042
     Dates: start: 20050502, end: 20050804
  2. PREDNISONE [Suspect]
     Indication: MULTIPLE MYELOMA
     Dosage: 105.00 MG, ORAL
     Route: 048
     Dates: start: 20050502
  3. MELPHALAN (MELPHALAN) VIAL [Suspect]
     Indication: MULTIPLE MYELOMA
     Dosage: 15.00 MG, ORAL
     Route: 048
     Dates: start: 20050502
  4. LEVOLAC (LACTULOSE) [Concomitant]
  5. TRAMADOL HCL [Concomitant]
  6. GLYCEROL (GLYCEROL) [Concomitant]
  7. ACYCLOVIR [Concomitant]
  8. PROLOL (PROPRANOLOL HYDROCHLORIDE) [Concomitant]
  9. ENALAPRIL MALEATE [Concomitant]
  10. PRAVASTATIN [Concomitant]
  11. PANTOPRAZOLE SODIUM [Concomitant]
  12. VENTOLIN NEBULES PF (SALBUTAMOL SULFATE) [Concomitant]
  13. SERETIDE DISKUS (FLUTICASONE PROPIONARE, SALMETEROL XINAFOATE) [Concomitant]
  14. OXYCONTIN [Concomitant]
  15. CHLORHEXIDINE (CHLORHEXIDINE) [Concomitant]
  16. BISACODYL (BISACODYL) [Concomitant]
  17. PAMIDRONATE SODIUM (PAMIDRONATE SODIUM) [Concomitant]
  18. LOPERAMIDE HYDROCHLORIDE [Concomitant]
  19. PROPOXYPHENE HCL [Concomitant]
  20. PARACETAMOL (PARACETAMOL) [Concomitant]
  21. OMEPRAZOLE [Concomitant]

REACTIONS (7)
  - ABDOMINAL PAIN [None]
  - ASTHENIA [None]
  - BLOOD UREA INCREASED [None]
  - BRONCHOSPASM [None]
  - DIARRHOEA [None]
  - INAPPROPRIATE ANTIDIURETIC HORMONE SECRETION [None]
  - OTITIS MEDIA [None]
